FAERS Safety Report 8400073-5 (Version None)
Quarter: 2012Q2

REPORT INFORMATION
  Report Type: 
  Country: None (occurrence: None)
  Receive Date: 20120531
  Receipt Date: 20120524
  Transmission Date: 20120825
  Serious: Yes (Other)
  Sender: FDA-Public Use
  Company Number: IT-ROXANE LABORATORIES, INC.-2012-RO-01306RO

PATIENT
  Sex: Female
  Weight: 2.6 kg

DRUGS (2)
  1. CYCLOPHOSPHAMIDE [Suspect]
     Indication: FOETAL EXPOSURE DURING PREGNANCY
     Route: 064
  2. EPIRUBICIN [Suspect]
     Indication: FOETAL EXPOSURE DURING PREGNANCY
     Route: 064

REACTIONS (4)
  - ELECTROCARDIOGRAM QT PROLONGED [None]
  - DIASTOLIC DYSFUNCTION [None]
  - VENTRICULAR HYPOKINESIA [None]
  - CARDIAC ENZYMES INCREASED [None]
